FAERS Safety Report 25858014 (Version 1)
Quarter: 2025Q3

REPORT INFORMATION
  Report Type: Spontaneous
  Country: JP (occurrence: JP)
  Receive Date: 20250929
  Receipt Date: 20250929
  Transmission Date: 20251020
  Serious: Yes (Hospitalization, Other)
  Sender: Long Grove Pharmaceuticals
  Company Number: JP-Long Grove-000144

PATIENT
  Age: 79 Year
  Sex: Male
  Weight: 64.5 kg

DRUGS (4)
  1. TRIAMCINOLONE ACETONIDE [Suspect]
     Active Substance: TRIAMCINOLONE ACETONIDE
     Indication: Joint swelling
     Route: 014
  2. METHOTREXATE [Concomitant]
     Active Substance: METHOTREXATE
     Indication: Rheumatoid arthritis
  3. BUDESONIDE [Concomitant]
     Active Substance: BUDESONIDE
     Indication: Asthma
  4. CEPHALEXIN [Concomitant]
     Active Substance: CEPHALEXIN
     Indication: Joint swelling
     Dosage: FOR 14 DAYS
     Route: 048

REACTIONS (4)
  - Mycobacterium avium complex infection [Recovered/Resolved]
  - Osteomyelitis [Recovered/Resolved]
  - Infective tenosynovitis [Recovered/Resolved]
  - Arthritis infective [Recovered/Resolved]
